FAERS Safety Report 25075978 (Version 1)
Quarter: 2025Q1

REPORT INFORMATION
  Report Type: Other
  Country: FR (occurrence: FR)
  Receive Date: 20250313
  Receipt Date: 20250313
  Transmission Date: 20250409
  Serious: Yes (Life-Threatening, Other)
  Sender: ARGENX BVBA
  Company Number: None

PATIENT

DRUGS (2)
  1. EFGARTIGIMOD ALFA [Suspect]
     Active Substance: EFGARTIGIMOD ALFA
     Indication: Myasthenia gravis
     Route: 042
     Dates: start: 20241220
  2. METHYLPREDNISOLONE ACETATE [Suspect]
     Active Substance: METHYLPREDNISOLONE ACETATE
     Indication: Myasthenia gravis
     Dosage: 40 MG, DAILY
     Route: 048
     Dates: start: 20241205

REACTIONS (2)
  - Laryngeal necrosis [Not Recovered/Not Resolved]
  - Abscess [Recovering/Resolving]

NARRATIVE: CASE EVENT DATE: 20250224
